FAERS Safety Report 9414183 (Version 3)
Quarter: 2013Q3

REPORT INFORMATION
  Report Type: Spontaneous
  Country: IT (occurrence: None)
  Receive Date: 20130717
  Receipt Date: 20130911
  Transmission Date: 20140515
  Serious: Yes (Hospitalization)
  Sender: FDA-Public Use
  Company Number: AUR-APL-2013-05872

PATIENT
  Age: 60 Year
  Sex: Female

DRUGS (10)
  1. ATENOLOL [Suspect]
     Indication: PRODUCT USED FOR UNKNOWN INDICATION
     Dates: start: 20130626, end: 20130626
  2. DELORAZEPAM [Suspect]
     Indication: PRODUCT USED FOR UNKNOWN INDICATION
     Dosage: 40 MG, TOTAL, ORAL
     Route: 048
     Dates: start: 20130626, end: 20130626
  3. TAVOR [Suspect]
     Indication: PRODUCT USED FOR UNKNOWN INDICATION
     Dosage: 2 DOSAGE FORMS, TOTAL), ORAL
     Route: 048
     Dates: start: 20130626, end: 20130626
  4. TALOFEN [Suspect]
     Indication: PRODUCT USED FOR UNKNOWN INDICATION
     Route: 048
     Dates: start: 20130626, end: 20130626
  5. ESIDREX [Suspect]
     Indication: PRODUCT USED FOR UNKNOWN INDICATION
     Dates: start: 20130626, end: 20130626
  6. GLUCOPHAGE [Suspect]
     Indication: PRODUCT USED FOR UNKNOWN INDICATION
     Dosage: 3 DOSAGE FORMS
     Dates: start: 20130626, end: 20130626
  7. LANTUS [Suspect]
     Indication: PRODUCT USED FOR UNKNOWN INDICATION
     Dosage: 26 IU TO 3 MEALS, UNKNOWN
     Dates: start: 20130626, end: 20130626
  8. NOVORAPID [Suspect]
     Indication: PRODUCT USED FOR UNKNOWN INDICATION
     Dosage: 10 IU TO 3 MEALS, UNKNOWN
     Dates: start: 20130626, end: 20130626
  9. CYCLOBENZAPRINE HYDROCHLORIDE [Suspect]
     Indication: PRODUCT USED FOR UNKNOWN INDICATION
     Dates: start: 20130626, end: 20130626
  10. ACARBOSE [Concomitant]

REACTIONS (7)
  - Intentional self-injury [None]
  - Drug abuse [None]
  - Sopor [None]
  - Somnolence [None]
  - Blood glucose increased [None]
  - Toxicologic test abnormal [None]
  - Schizophrenia [None]
